FAERS Safety Report 11563995 (Version 2)
Quarter: 2015Q4

REPORT INFORMATION
  Report Type: Spontaneous
  Country: US (occurrence: US)
  Receive Date: 20150916
  Receipt Date: 20151027
  Transmission Date: 20160304
  Serious: No
  Sender: FDA-Public Use
  Company Number: US-ELI_LILLY_AND_COMPANY-US200902005130

PATIENT
  Sex: Female

DRUGS (2)
  1. FORTEO [Suspect]
     Active Substance: TERIPARATIDE
     Dates: start: 20090213, end: 20090220
  2. CALCIUM [Concomitant]
     Active Substance: CALCIUM
     Dosage: UNK, WEEKLY (1/W)

REACTIONS (8)
  - Pain in extremity [Not Recovered/Not Resolved]
  - Malaise [Not Recovered/Not Resolved]
  - Nodule [Unknown]
  - Cough [Not Recovered/Not Resolved]
  - Bone pain [Unknown]
  - Headache [Not Recovered/Not Resolved]
  - Asthenia [Unknown]
  - Fatigue [Unknown]

NARRATIVE: CASE EVENT DATE: 2009
